FAERS Safety Report 9519589 (Version 2)
Quarter: 2013Q3

REPORT INFORMATION
  Report Type: Spontaneous
  Country: US (occurrence: US)
  Receive Date: 20130912
  Receipt Date: 20130912
  Transmission Date: 20140515
  Serious: No
  Sender: FDA-Public Use
  Company Number: US-BANPHARM-20131602

PATIENT
  Sex: Male

DRUGS (7)
  1. STAVZOR DELAYED RELEASE CAPSULES [Suspect]
     Indication: MANIA
     Dosage: 1000 MG, BID,
     Route: 048
  2. MULTIPLE VITAMINS [Concomitant]
  3. ERGOCALCIFEROL [Concomitant]
  4. FOLIC ACID [Concomitant]
  5. RETINOL [Concomitant]
  6. TOCOPHEROL [Concomitant]
  7. VITAMIN B NOS [Concomitant]

REACTIONS (2)
  - Panic reaction [Recovered/Resolved]
  - Drug dose omission [Unknown]
